FAERS Safety Report 4777885-2 (Version None)
Quarter: 2005Q3

REPORT INFORMATION
  Report Type: 
  Country: None (occurrence: None)
  Receive Date: 20050921
  Receipt Date: 20050908
  Transmission Date: 20060218
  Serious: Yes (Other)
  Sender: FDA-Public Use
  Company Number: 2002001734

PATIENT
  Age: 14 Year
  Sex: Female

DRUGS (7)
  1. POLYMYXIN B SULFATE [Suspect]
     Indication: GASTROINTESTINAL DISORDER
  2. CYTARABINE [Suspect]
     Indication: ACUTE MYELOID LEUKAEMIA
     Dosage: INTRAVENOUS
     Route: 042
  3. PIRARUBICIN (PIRARUBICIN) [Suspect]
     Indication: ACUTE MYELOID LEUKAEMIA
  4. VINCRISTINE (VINCRISTINE) (VINCRISTINE) [Suspect]
     Indication: ACUTE MYELOID LEUKAEMIA
  5. KANAMYCIN (KANAMYCIN) [Concomitant]
  6. AMPHOTERICIN B [Concomitant]
  7. SULFAMETHOXAZOLE + TRIMETHOPRIM [Concomitant]

REACTIONS (9)
  - ACUTE RESPIRATORY DISTRESS SYNDROME [None]
  - BAND NEUTROPHIL PERCENTAGE INCREASED [None]
  - FEBRILE NEUTROPENIA [None]
  - LYMPHOCYTE PERCENTAGE DECREASED [None]
  - MONOCYTE PERCENTAGE INCREASED [None]
  - PURULENT DISCHARGE [None]
  - STOMATITIS [None]
  - STREPTOCOCCAL SEPSIS [None]
  - THYROIDITIS ACUTE [None]
